FAERS Safety Report 8494126-3 (Version None)
Quarter: 2012Q3

REPORT INFORMATION
  Report Type: 
  Country: None (occurrence: None)
  Receive Date: 20120702
  Receipt Date: 20120702
  Transmission Date: 20120928
  Serious: Yes (Other)
  Sender: FDA-Public Use
  Company Number: None

PATIENT
  Age: 28 Year
  Sex: Female
  Weight: 81.6475 kg

DRUGS (1)
  1. DROSPIRENONE AND ETHINYL ESTRADIOL [Suspect]
     Indication: ACNE
     Dosage: 1 TAB DAILY PO
     Route: 048
     Dates: start: 20060701, end: 20120701

REACTIONS (3)
  - PRODUCT QUALITY ISSUE [None]
  - POLYMENORRHOEA [None]
  - METRORRHAGIA [None]
